FAERS Safety Report 6409259-2 (Version None)
Quarter: 2009Q4

REPORT INFORMATION
  Report Type: 
  Country: None (occurrence: None)
  Receive Date: 20091021
  Receipt Date: 20091020
  Transmission Date: 20100525
  Serious: Yes (Death, Hospitalization)
  Sender: FDA-Public Use
  Company Number: US-GENENTECH-289507

PATIENT
  Sex: Male
  Weight: 68.481 kg

DRUGS (6)
  1. BEVACIZUMAB [Suspect]
     Indication: OESOPHAGEAL CARCINOMA
     Dosage: 575 MG, Q3W
     Route: 042
     Dates: start: 20090403, end: 20090506
  2. DOCETAXEL [Suspect]
     Indication: OESOPHAGEAL CARCINOMA
     Dosage: 140 MG, UNK
     Route: 042
     Dates: start: 20090403, end: 20090424
  3. OXALIPLATIN [Suspect]
     Indication: OESOPHAGEAL CARCINOMA
     Dosage: 150 MG, UNK
     Route: 042
     Dates: start: 20090403, end: 20090424
  4. FENTANYL-100 [Concomitant]
     Indication: DRUG USE FOR UNKNOWN INDICATION
     Dosage: 75 A?G, UNK
  5. OXYCODONE [Concomitant]
     Indication: DRUG USE FOR UNKNOWN INDICATION
     Dosage: 10 MG, UNK
  6. LEXAPRO [Concomitant]
     Indication: DRUG USE FOR UNKNOWN INDICATION
     Dosage: 10 MG, UNK

REACTIONS (16)
  - ABDOMINAL PAIN [None]
  - BLOOD BILIRUBIN INCREASED [None]
  - BLOOD POTASSIUM DECREASED [None]
  - BLOOD SODIUM DECREASED [None]
  - CHEST DISCOMFORT [None]
  - DECREASED APPETITE [None]
  - DISEASE PROGRESSION [None]
  - DIZZINESS [None]
  - FAILURE TO THRIVE [None]
  - HEPATIC LESION [None]
  - HYPOPHAGIA [None]
  - NAUSEA [None]
  - NEUTROPHIL COUNT DECREASED [None]
  - RASH PRURITIC [None]
  - VOMITING [None]
  - WHITE BLOOD CELL COUNT INCREASED [None]
